FAERS Safety Report 13335369 (Version 3)
Quarter: 2017Q2

REPORT INFORMATION
  Report Type: Report from Study
  Country: CA (occurrence: CA)
  Receive Date: 20170315
  Receipt Date: 20170411
  Transmission Date: 20170830
  Serious: Yes (Other)
  Sender: FDA-Public Use
  Company Number: CA-ROCHE-1899016

PATIENT
  Sex: Male

DRUGS (6)
  1. ESBRIET [Suspect]
     Active Substance: PIRFENIDONE
     Indication: IDIOPATHIC PULMONARY FIBROSIS
     Route: 048
     Dates: start: 20170210
  2. METOPROLOL. [Concomitant]
     Active Substance: METOPROLOL
  3. ESBRIET [Suspect]
     Active Substance: PIRFENIDONE
     Route: 048
     Dates: start: 20170224
  4. ESBRIET [Suspect]
     Active Substance: PIRFENIDONE
     Route: 048
     Dates: start: 20170217
  5. FUROSEMIDE. [Concomitant]
     Active Substance: FUROSEMIDE
  6. ASA [Concomitant]
     Active Substance: ASPIRIN

REACTIONS (5)
  - Abdominal discomfort [Recovering/Resolving]
  - Restlessness [Unknown]
  - Oxygen saturation decreased [Not Recovered/Not Resolved]
  - Sleep apnoea syndrome [Not Recovered/Not Resolved]
  - Dyspnoea exertional [Unknown]
